FAERS Safety Report 6708229-4 (Version None)
Quarter: 2010Q2

REPORT INFORMATION
  Report Type: 
  Country: None (occurrence: None)
  Receive Date: 20100503
  Receipt Date: 20090327
  Transmission Date: 20101027
  Serious: No
  Sender: FDA-Public Use
  Company Number: US-ASTRAZENECA-2009UW07948

PATIENT
  Age: 83 Year
  Sex: Female
  Weight: 54.4 kg

DRUGS (4)
  1. NEXIUM [Suspect]
     Indication: GASTROOESOPHAGEAL REFLUX DISEASE
     Route: 048
     Dates: start: 20090126
  2. ATENOLOL [Concomitant]
  3. NORVASC [Concomitant]
  4. DIOVAN [Concomitant]

REACTIONS (3)
  - DYSPHONIA [None]
  - MOUTH ULCERATION [None]
  - RHINORRHOEA [None]
